FAERS Safety Report 8796955 (Version 2)
Quarter: 2012Q4

REPORT INFORMATION
  Report Type: 
  Country: JP (occurrence: JP)
  Receive Date: 20120920
  Receipt Date: 20120924
  Transmission Date: 20130627
  Serious: Yes (Other)
  Sender: FDA-Public Use
  Company Number: PHHY2012JP080992

PATIENT
  Age: 80 Year
  Sex: Female

DRUGS (3)
  1. ZOMETA [Suspect]
     Indication: METASTASES TO BONE
     Route: 041
     Dates: start: 201001, end: 201103
  2. ZOMETA [Suspect]
     Route: 041
     Dates: start: 201106, end: 201204
  3. FEMARA [Concomitant]
     Dosage: UNK UKN, UNK
     Route: 048
     Dates: start: 201001

REACTIONS (7)
  - Fall [Unknown]
  - Loss of consciousness [Unknown]
  - Head injury [Unknown]
  - Osteonecrosis of jaw [Unknown]
  - Primary sequestrum [Unknown]
  - Impaired healing [Unknown]
  - Purulent discharge [Unknown]
